FAERS Safety Report 19015564 (Version 1)
Quarter: 2021Q1

REPORT INFORMATION
  Report Type: Spontaneous
  Country: US (occurrence: US)
  Receive Date: 20210317
  Receipt Date: 20210317
  Transmission Date: 20210420
  Serious: Yes (Hospitalization)
  Sender: FDA-Public Use
  Company Number: US-ROCHE-2755289

PATIENT
  Sex: Female

DRUGS (5)
  1. TUKYSA [Suspect]
     Active Substance: TUCATINIB
     Route: 065
  2. XELODA [Suspect]
     Active Substance: CAPECITABINE
     Indication: PRODUCT USED FOR UNKNOWN INDICATION
     Route: 065
  3. TUKYSA [Suspect]
     Active Substance: TUCATINIB
     Route: 065
  4. HERCEPTIN [Suspect]
     Active Substance: TRASTUZUMAB
     Indication: PRODUCT USED FOR UNKNOWN INDICATION
     Route: 065
  5. TUKYSA [Suspect]
     Active Substance: TUCATINIB
     Indication: BREAST CANCER FEMALE
     Route: 065

REACTIONS (5)
  - Balance disorder [Unknown]
  - Energy increased [Unknown]
  - Increased appetite [Unknown]
  - Diarrhoea [Unknown]
  - Pulmonary thrombosis [Unknown]
